FAERS Safety Report 4551414-0 (Version None)
Quarter: 2005Q1

REPORT INFORMATION
  Report Type: 
  Country: None (occurrence: None)
  Receive Date: 20050111
  Receipt Date: 20050111
  Transmission Date: 20050727
  Serious: Yes (Hospitalization)
  Sender: FDA-Public Use
  Company Number: None

PATIENT
  Sex: Female
  Weight: 51.7101 kg

DRUGS (2)
  1. OXANDRIN [Suspect]
     Indication: WEIGHT DECREASED
     Dosage: 100 MG PO BID
     Route: 048
     Dates: start: 20041119, end: 20041208
  2. TARCEVA [Concomitant]

REACTIONS (5)
  - ANOREXIA [None]
  - ASTHENIA [None]
  - DEHYDRATION [None]
  - DYSPNOEA [None]
  - FATIGUE [None]
